FAERS Safety Report 14806317 (Version 5)
Quarter: 2025Q3

REPORT INFORMATION
  Report Type: Report from Study
  Country: EU (occurrence: EU)
  Receive Date: 20180425
  Receipt Date: 20250701
  Transmission Date: 20251020
  Serious: Yes (Other)
  Sender: SANOFI AVENTIS
  Company Number: EU-NOVPHSZ-PHHY2017DE122113

PATIENT
  Age: 20 Year
  Sex: Female

DRUGS (19)
  1. ALEMTUZUMAB [Suspect]
     Active Substance: ALEMTUZUMAB
     Indication: Bone marrow conditioning regimen
     Dosage: 0.2 MG/KG, QD, ON DAYS -9 AND -8
  2. ALEMTUZUMAB [Suspect]
     Active Substance: ALEMTUZUMAB
     Indication: Sickle cell disease
  3. FLUDARABINE PHOSPHATE [Suspect]
     Active Substance: FLUDARABINE PHOSPHATE
     Indication: Bone marrow conditioning regimen
     Dosage: 30 MG/M2, QD, ON DAYS -7 TO -3
  4. FLUDARABINE PHOSPHATE [Suspect]
     Active Substance: FLUDARABINE PHOSPHATE
     Indication: Sickle cell disease
  5. MYCOPHENOLATE MOFETIL [Suspect]
     Active Substance: MYCOPHENOLATE MOFETIL
     Indication: Prophylaxis against graft versus host disease
     Dosage: 15 MG/KG, TID FROM POST TRANSPLANT DAY +5 TO +35; P.O/I.V
     Route: 042
  6. CYCLOPHOSPHAMIDE [Suspect]
     Active Substance: CYCLOPHOSPHAMIDE
     Indication: Bone marrow conditioning regimen
     Dosage: 14.5 MG/KG, QD, ON DAYS -3 AND -2
  7. CYCLOPHOSPHAMIDE [Suspect]
     Active Substance: CYCLOPHOSPHAMIDE
     Indication: Sickle cell disease
     Dosage: 50 MG/KG, QD, ON DAYS +3 AND +4
  8. CYCLOPHOSPHAMIDE [Suspect]
     Active Substance: CYCLOPHOSPHAMIDE
     Indication: Prophylaxis against graft versus host disease
  9. THIOTEPA [Suspect]
     Active Substance: THIOTEPA
     Indication: Bone marrow conditioning regimen
     Dosage: 5 MG/KG, BID, DAY -4
  10. THIOTEPA [Suspect]
     Active Substance: THIOTEPA
     Indication: Sickle cell disease
  11. TACROLIMUS [Suspect]
     Active Substance: TACROLIMUS
     Indication: Prophylaxis against graft versus host disease
     Route: 042
  12. TREOSULFAN [Suspect]
     Active Substance: TREOSULFAN
     Indication: Bone marrow conditioning regimen
     Dosage: 14 G/M2,QD ON DAYS -7 TO -5
  13. TREOSULFAN [Suspect]
     Active Substance: TREOSULFAN
     Indication: Sickle cell disease
  14. RITUXIMAB [Suspect]
     Active Substance: RITUXIMAB
     Indication: Haemolysis
  15. HYDROXYUREA [Concomitant]
     Active Substance: HYDROXYUREA
     Indication: Sickle cell disease
  16. LEVETIRACETAM [Concomitant]
     Active Substance: LEVETIRACETAM
     Indication: Seizure prophylaxis
  17. GRANULOCYTE COLONY-STIMULATING FACTOR NOS [Concomitant]
     Active Substance: GRANULOCYTE COLONY-STIMULATING FACTOR NOS
     Indication: Seizure prophylaxis
     Dosage: 5 UG/KG/DAY FROM DAY +5 UNTIL ENGRAFTMENT
  18. ACYCLOVIR [Concomitant]
     Active Substance: ACYCLOVIR
     Indication: Prophylaxis
  19. HUMAN IMMUNOGLOBULIN G [Concomitant]
     Active Substance: HUMAN IMMUNOGLOBULIN G

REACTIONS (3)
  - Citrobacter infection [Unknown]
  - Varicella zoster virus infection [Recovered/Resolved]
  - Off label use [Unknown]
